FAERS Safety Report 7395445-4 (Version None)
Quarter: 2011Q2

REPORT INFORMATION
  Report Type: 
  Country: None (occurrence: None)
  Receive Date: 20110405
  Receipt Date: 20110401
  Transmission Date: 20111010
  Serious: Yes (Other)
  Sender: FDA-Public Use
  Company Number: CN-PFIZER INC-2011059825

PATIENT
  Age: 80 Year

DRUGS (1)
  1. DIFLUCAN [Suspect]
     Dosage: 0.4 G, 1X/DAY
     Route: 041

REACTIONS (1)
  - ANURIA [None]
